FAERS Safety Report 18945643 (Version 2)
Quarter: 2021Q4

REPORT INFORMATION
  Report Type: Spontaneous
  Country: CA (occurrence: None)
  Receive Date: 20210226
  Receipt Date: 20211228
  Transmission Date: 20220303
  Serious: Yes (Hospitalization)
  Sender: FDA-Public Use
  Company Number: CA-ROCHE-2768561

PATIENT
  Age: 58 Year
  Sex: Female

DRUGS (7)
  1. CAPECITABINE [Suspect]
     Active Substance: CAPECITABINE
     Indication: Product used for unknown indication
     Route: 048
  2. GOSERELIN [Suspect]
     Active Substance: GOSERELIN
     Indication: Product used for unknown indication
     Route: 058
  3. LETROZOLE [Suspect]
     Active Substance: LETROZOLE
     Indication: Product used for unknown indication
     Route: 065
  4. TAMOXIFEN [Suspect]
     Active Substance: TAMOXIFEN
     Indication: Product used for unknown indication
     Route: 048
  5. AFINITOR [Suspect]
     Active Substance: EVEROLIMUS
     Indication: Breast cancer
     Route: 048
  6. AFINITOR [Suspect]
     Active Substance: EVEROLIMUS
     Route: 065
  7. ANASTROZOLE [Suspect]
     Active Substance: ANASTROZOLE
     Indication: Breast cancer
     Route: 048

REACTIONS (8)
  - Ascites [Unknown]
  - Blood bilirubin increased [Unknown]
  - Breast cancer metastatic [Unknown]
  - Drug ineffective [Unknown]
  - Malaise [Unknown]
  - Malignant neoplasm progression [Unknown]
  - Platelet count decreased [Unknown]
  - Platelet count increased [Unknown]
